FAERS Safety Report 9099472 (Version 5)
Quarter: 2013Q2

REPORT INFORMATION
  Report Type: Spontaneous
  Country: GB (occurrence: GB)
  Receive Date: 20130214
  Receipt Date: 20130624
  Transmission Date: 20140414
  Serious: Yes (Other)
  Sender: FDA-Public Use
  Company Number: PHFR2013GB001162

PATIENT
  Sex: Female

DRUGS (4)
  1. ACLASTA [Suspect]
     Indication: OSTEOPOROSIS
     Dosage: ONCE YEARLY
     Route: 042
     Dates: start: 2012
  2. ACLASTA [Suspect]
     Dosage: ONCE YEARLY
     Route: 042
  3. TIMOLOL [Concomitant]
     Indication: GLAUCOMA
     Dosage: UNK UKN, UNK
  4. AZOPT [Concomitant]
     Indication: GLAUCOMA
     Dosage: UNK UKN, UNK

REACTIONS (4)
  - Visual acuity reduced [Not Recovered/Not Resolved]
  - Concomitant disease aggravated [Not Recovered/Not Resolved]
  - Fibrin deposition on lens postoperative [Unknown]
  - Vision blurred [Unknown]
